FAERS Safety Report 16849618 (Version 1)
Quarter: 2019Q4

REPORT INFORMATION
  Report Type: Spontaneous
  Country: US (occurrence: US)
  Receive Date: 20190925
  Receipt Date: 20190925
  Transmission Date: 20200122
  Serious: Yes (Other)
  Sender: FDA-Public Use
  Company Number: None

PATIENT
  Age: 22 Year
  Sex: Female

DRUGS (1)
  1. TUBERSOL [Suspect]
     Active Substance: TUBERCULIN PURIFIED PROTEIN DERIVATIVE
     Indication: MYCOBACTERIUM TUBERCULOSIS COMPLEX TEST
     Dosage: ?          OTHER FREQUENCY:ONCE;?
     Route: 023
     Dates: start: 20190924, end: 20190924

REACTIONS (1)
  - Tuberculin test positive [None]

NARRATIVE: CASE EVENT DATE: 20190925
